FAERS Safety Report 6190177-2 (Version None)
Quarter: 2009Q2

REPORT INFORMATION
  Report Type: 
  Country: None (occurrence: None)
  Receive Date: 20090514
  Receipt Date: 20090508
  Transmission Date: 20091009
  Serious: Yes (Death, Hospitalization)
  Sender: FDA-Public Use
  Company Number: US-ELI_LILLY_AND_COMPANY-US200904004967

PATIENT
  Sex: Female

DRUGS (1)
  1. FORTEO [Suspect]
     Dosage: 20 UG, EACH EVENING
     Dates: start: 20080507

REACTIONS (3)
  - ARTERIAL RUPTURE [None]
  - ARTERIOSCLEROSIS [None]
  - CARDIOMEGALY [None]
